FAERS Safety Report 9891297 (Version 1)
Quarter: 2014Q1

REPORT INFORMATION
  Report Type: Spontaneous
  Country: US (occurrence: None)
  Receive Date: 20140211
  Receipt Date: 20140211
  Transmission Date: 20141002
  Serious: Yes (Hospitalization)
  Sender: FDA-Public Use
  Company Number: None

PATIENT
  Age: 89 Year
  Sex: Male
  Weight: 75.5 kg

DRUGS (2)
  1. WARFARIN [Suspect]
     Indication: ATRIAL FIBRILLATION
  2. IBUPROFEN [Suspect]

REACTIONS (4)
  - Anaemia [None]
  - Gastrointestinal haemorrhage [None]
  - Ischaemia [None]
  - International normalised ratio increased [None]
